FAERS Safety Report 5724808-5 (Version None)
Quarter: 2008Q2

REPORT INFORMATION
  Report Type: 
  Country: None (occurrence: None)
  Receive Date: 20080430
  Receipt Date: 20080430
  Transmission Date: 20081010
  Serious: Yes (Hospitalization)
  Sender: FDA-Public Use
  Company Number: None

PATIENT
  Age: 45 Year
  Sex: Male

DRUGS (1)
  1. EFAVIRENZ [Suspect]
     Dosage: 600 MG  HS  PO
     Route: 048
     Dates: start: 20010501, end: 20080221

REACTIONS (4)
  - CEREBROVASCULAR ACCIDENT [None]
  - CONVULSION [None]
  - CONVULSIVE THRESHOLD LOWERED [None]
  - ENCEPHALOMALACIA [None]
